FAERS Safety Report 11736137 (Version 1)
Quarter: 2015Q4

REPORT INFORMATION
  Report Type: Spontaneous
  Country: US (occurrence: US)
  Receive Date: 20151113
  Receipt Date: 20151113
  Transmission Date: 20160304
  Serious: Yes (Other)
  Sender: FDA-Public Use
  Company Number: US-JNJFOC-20151006224

PATIENT

DRUGS (2)
  1. DOXORUBICIN HYDROCHLORIDE. [Suspect]
     Active Substance: DOXORUBICIN HYDROCHLORIDE
     Indication: SARCOMA METASTATIC
     Dosage: ON DAY 1
     Route: 042
  2. IMC-3G3 (RH ANTI-PDGFRA MAB) [Suspect]
     Active Substance: OLARATUMAB
     Indication: SARCOMA METASTATIC
     Dosage: ON DAYS 1 AND 8, EVERY 21 DAYS,
     Route: 065

REACTIONS (8)
  - Infection [Unknown]
  - Thrombocytopenia [Unknown]
  - Neutropenia [Unknown]
  - Off label use [Unknown]
  - Fatigue [Unknown]
  - Product use issue [Unknown]
  - Anaemia [Unknown]
  - Febrile neutropenia [Unknown]
